FAERS Safety Report 6931030-3 (Version None)
Quarter: 2010Q3

REPORT INFORMATION
  Report Type: 
  Country: None (occurrence: None)
  Receive Date: 20100818
  Receipt Date: 20100809
  Transmission Date: 20110219
  Serious: Yes (Other)
  Sender: FDA-Public Use
  Company Number: FR-WATSON-2010-09939

PATIENT
  Age: 51 Year
  Sex: Male

DRUGS (5)
  1. METRONIDAZOLE [Suspect]
     Indication: BRAIN ABSCESS
     Dosage: 500 MG, X 3
  2. VANCOMYCIN [Concomitant]
     Indication: BRAIN ABSCESS
     Dosage: UNK
     Route: 042
  3. CEFTRIAXONE [Concomitant]
     Indication: BRAIN ABSCESS
     Dosage: UNK
     Route: 042
  4. THIAMPHENICOL [Concomitant]
     Indication: BRAIN ABSCESS
     Dosage: UNK
     Route: 042
  5. CEFTAZIDIME [Concomitant]
     Indication: BRAIN ABSCESS
     Dosage: 6 G DAILY
     Route: 042

REACTIONS (2)
  - CENTRAL NERVOUS SYSTEM LESION [None]
  - ENCEPHALOPATHY [None]
